FAERS Safety Report 5587760-1 (Version None)
Quarter: 2008Q1

REPORT INFORMATION
  Report Type: 
  Country: None (occurrence: None)
  Receive Date: 20080108
  Receipt Date: 20080102
  Transmission Date: 20080703
  Serious: Yes (Hospitalization)
  Sender: FDA-Public Use
  Company Number: 2007SP024168

PATIENT
  Age: 55 Year
  Sex: Male
  Weight: 147.8726 kg

DRUGS (2)
  1. REBETOL [Suspect]
     Indication: HEPATITIS C
     Dosage: PO
     Route: 048
     Dates: end: 20010701
  2. INTRON A [Suspect]
     Indication: HEPATITIS C
     Dosage: SC
     Route: 058
     Dates: end: 20010701

REACTIONS (4)
  - ACCIDENT AT WORK [None]
  - FALL [None]
  - JOINT INJURY [None]
  - KNEE ARTHROPLASTY [None]
